FAERS Safety Report 8902852 (Version 2)
Quarter: 2012Q4

REPORT INFORMATION
  Report Type: 
  Country: TR (occurrence: TR)
  Receive Date: 20121112
  Receipt Date: 20121121
  Transmission Date: 20130627
  Serious: Yes (Hospitalization)
  Sender: FDA-Public Use
  Company Number: TR-SANOFI-AVENTIS-2012SA080247

PATIENT
  Age: 26 Year
  Sex: Female
  Weight: 81 kg

DRUGS (5)
  1. CLEXANE [Suspect]
     Indication: FACTOR V LEIDEN HETEROZYGOTE
     Dosage: 1,2,3 trimesters.
     Route: 058
     Dates: start: 201204
  2. CLEXANE [Suspect]
     Indication: FACTOR V LEIDEN HETEROZYGOTE
     Dosage: 1,2,3 trimesters.
     Route: 058
     Dates: start: 201204
  3. MULTIVITAMINS [Concomitant]
     Indication: DRUG USE FOR UNKNOWN INDICATION
     Route: 048
     Dates: start: 201207, end: 201210
  4. EUTHYROX [Concomitant]
     Indication: HYPOTHYROIDISM
     Route: 048
     Dates: start: 201204
  5. FERRO ^SANOL^ [Concomitant]
     Indication: DRUG USE FOR UNKNOWN INDICATION
     Route: 048
     Dates: start: 201208

REACTIONS (3)
  - Haemorrhage in pregnancy [Recovered/Resolved]
  - Exposure during pregnancy [Unknown]
  - Injection site warmth [Recovering/Resolving]
